FAERS Safety Report 5592653-X (Version None)
Quarter: 2008Q1

REPORT INFORMATION
  Report Type: 
  Country: None (occurrence: None)
  Receive Date: 20080115
  Receipt Date: 20071031
  Transmission Date: 20080703
  Serious: Yes (Other)
  Sender: FDA-Public Use
  Company Number: US-BOEHRINGER INGELHEIM PHARMACEUTICALS, INC.-2007-BP-26444BP

PATIENT
  Age: 65 Year
  Sex: Female

DRUGS (2)
  1. MIRAPEX [Suspect]
     Indication: RESTLESS LEGS SYNDROME
     Route: 048
  2. REQUIP [Concomitant]
     Indication: RESTLESS LEGS SYNDROME
     Dates: end: 20051101

REACTIONS (12)
  - APHASIA [None]
  - CARPAL TUNNEL SYNDROME [None]
  - DEPENDENCE [None]
  - EMOTIONAL DISORDER [None]
  - HYPERPHAGIA [None]
  - INSOMNIA [None]
  - LOSS OF DREAMING [None]
  - PATHOLOGICAL GAMBLING [None]
  - SMOKER [None]
  - SOMNOLENCE [None]
  - SUICIDAL IDEATION [None]
  - WEIGHT INCREASED [None]
